FAERS Safety Report 9680364 (Version 1)
Quarter: 2013Q4

REPORT INFORMATION
  Report Type: Spontaneous
  Country: FR (occurrence: FR)
  Receive Date: 20131111
  Receipt Date: 20131111
  Transmission Date: 20140711
  Serious: Yes (Congenital Anomaly)
  Sender: FDA-Public Use
  Company Number: FR-JNJFOC-20131016985

PATIENT
  Age: 0 Day
  Sex: Male
  Weight: 2.74 kg

DRUGS (2)
  1. HALDOL DECANOAS [Suspect]
     Indication: PSYCHOTIC DISORDER
     Dosage: 3 AMPOULES(PARENT DOSING)
     Route: 064
     Dates: start: 20100119, end: 20100120
  2. HALDOL DECANOAS [Suspect]
     Indication: PSYCHOTIC DISORDER
     Dosage: PARENT DOSING
     Route: 064

REACTIONS (4)
  - CHARGE syndrome [Unknown]
  - Apgar score low [Recovered/Resolved]
  - Hypertonia neonatal [Recovered/Resolved]
  - Foetal exposure during pregnancy [Recovered/Resolved]
